FAERS Safety Report 23973945 (Version 1)
Quarter: 2024Q2

REPORT INFORMATION
  Report Type: Report from Study
  Country: GB (occurrence: GB)
  Receive Date: 20240613
  Receipt Date: 20240613
  Transmission Date: 20240715
  Serious: Yes (Hospitalization)
  Sender: FDA-Public Use
  Company Number: GB-Vifor (International) Inc.-VIT-2024-05032

PATIENT
  Age: 50 Year
  Sex: Female
  Weight: 86.6 kg

DRUGS (32)
  1. AVACOPAN [Suspect]
     Active Substance: AVACOPAN
     Indication: Anti-neutrophil cytoplasmic antibody positive vasculitis
     Dosage: TWICE DAILY (BD)
     Route: 048
     Dates: start: 20240531, end: 20240602
  2. RITUXIMAB [Concomitant]
     Active Substance: RITUXIMAB
     Indication: Anti-neutrophil cytoplasmic antibody positive vasculitis
     Dosage: TWO INFUSIONS IN TOT.
     Route: 042
     Dates: start: 20240423
  3. METHYLPREDNISOLONE [Concomitant]
     Active Substance: METHYLPREDNISOLONE
     Indication: Anti-neutrophil cytoplasmic antibody positive vasculitis
     Dosage: SINGLE IV INFUSION
     Route: 042
     Dates: start: 20240131, end: 20240131
  4. METHYLPREDNISOLONE [Concomitant]
     Active Substance: METHYLPREDNISOLONE
     Dosage: SINGLE IV INFUSION
     Route: 042
     Dates: start: 20240203, end: 20240204
  5. METHYLPREDNISOLONE [Concomitant]
     Active Substance: METHYLPREDNISOLONE
     Dosage: SINGLE IV INFUSION
     Route: 042
     Dates: start: 20240423, end: 20240423
  6. METHYLPREDNISOLONE ACETATE [Concomitant]
     Active Substance: METHYLPREDNISOLONE ACETATE
     Indication: Anti-neutrophil cytoplasmic antibody positive vasculitis
     Dosage: 80 MILLIGRAM, Q4WK
     Route: 030
     Dates: start: 20170825
  7. METHOTREXATE [Concomitant]
     Active Substance: METHOTREXATE
     Indication: Anti-neutrophil cytoplasmic antibody positive vasculitis
     Dosage: 20 MILLIGRAM, QWK
     Route: 058
     Dates: start: 20230807, end: 20240415
  8. HYDROCORTISONE [Concomitant]
     Active Substance: HYDROCORTISONE\HYDROCORTISONE ACETATE
     Indication: Anti-neutrophil cytoplasmic antibody positive vasculitis
     Dosage: COMPLETION OF PLANNED COURSE
     Route: 048
     Dates: start: 20240130, end: 20240130
  9. HYDROCORTISONE [Concomitant]
     Active Substance: HYDROCORTISONE\HYDROCORTISONE ACETATE
     Dosage: COMPLETION OF PLANNED COURSE
     Route: 048
     Dates: start: 20240131, end: 20240131
  10. HYDROCORTISONE [Concomitant]
     Active Substance: HYDROCORTISONE\HYDROCORTISONE ACETATE
     Dosage: COMPLETION OF PLANNED COURSE
     Route: 048
     Dates: start: 20240201, end: 20240201
  11. HYDROCORTISONE [Concomitant]
     Active Substance: HYDROCORTISONE\HYDROCORTISONE ACETATE
     Dosage: COMPLETION OF PLANNED COURSE
     Route: 048
     Dates: start: 20240202, end: 20240203
  12. HYDROCORTISONE [Concomitant]
     Active Substance: HYDROCORTISONE\HYDROCORTISONE ACETATE
     Dosage: COMPLETION OF PLANNED COURSE
     Route: 048
     Dates: start: 20240205, end: 20240205
  13. HYDROCORTISONE [Concomitant]
     Active Substance: HYDROCORTISONE\HYDROCORTISONE ACETATE
     Dosage: COMPLETION OF PLANNED COURSE
     Route: 048
     Dates: start: 20240206, end: 202404
  14. HYDROCORTISONE [Concomitant]
     Active Substance: HYDROCORTISONE\HYDROCORTISONE ACETATE
     Dosage: COMPLETION OF PLANNED COURSE
     Route: 048
     Dates: start: 20240206, end: 202404
  15. HYDROCORTISONE [Concomitant]
     Active Substance: HYDROCORTISONE\HYDROCORTISONE ACETATE
     Dosage: 10 MILLIGRAM, QD
     Route: 048
     Dates: start: 2024, end: 20240601
  16. HYDROCORTISONE [Concomitant]
     Active Substance: HYDROCORTISONE\HYDROCORTISONE ACETATE
     Dosage: 5 MILLIGRAM, QD
     Route: 048
     Dates: start: 202405, end: 20240601
  17. HYDROCORTISONE [Concomitant]
     Active Substance: HYDROCORTISONE\HYDROCORTISONE ACETATE
     Dosage: SINGLE IV INFUSION
     Route: 048
     Dates: start: 20240602
  18. PREDNISOLONE [Concomitant]
     Active Substance: PREDNISOLONE
     Indication: Anti-neutrophil cytoplasmic antibody positive vasculitis
     Dosage: COMPLETION OF PLANNED COURSE
     Route: 048
     Dates: start: 20240416, end: 202404
  19. ASPIRIN [Concomitant]
     Active Substance: ASPIRIN
     Indication: Prophylaxis
     Dosage: 75 MILLIGRAM, QD
     Route: 048
     Dates: start: 20231206
  20. BUDESONIDE [Concomitant]
     Active Substance: BUDESONIDE
     Indication: Anti-neutrophil cytoplasmic antibody positive vasculitis
     Dosage: 1 MILLIGRAM, QD
     Dates: start: 20240226
  21. CALCIUM CARBONATE\CHOLECALCIFEROL [Concomitant]
     Active Substance: CALCIUM CARBONATE\CHOLECALCIFEROL
     Indication: Prophylaxis
     Dosage: 1.5 GR + 10 MCG
     Route: 048
     Dates: start: 20161205
  22. COTRIMOXAZOLE [Concomitant]
     Active Substance: SULFAMETHOXAZOLE\TRIMETHOPRIM
     Indication: Infection prophylaxis
     Dosage: 480 MILLIGRAM, QWK
     Route: 048
     Dates: start: 20240602
  23. DALTEPARIN [Concomitant]
     Active Substance: DALTEPARIN
     Indication: Prophylaxis
     Dosage: 5000 INTERNATIONAL UNIT, QD
     Route: 058
     Dates: start: 20240602
  24. DERMOL [Concomitant]
     Active Substance: BENZALKONIUM CHLORIDE\CHLORHEXIDINE HYDROCHLORIDE\ISOPROPYL MYRISTATE\PARAFFIN
     Indication: Dry skin
     Dosage: 1 DOSAGE FORM, QD
     Route: 061
     Dates: start: 20240220
  25. DOCUSATE [Concomitant]
     Active Substance: DOCUSATE
     Indication: Constipation
     Dosage: 100 MILLIGRAM
     Route: 048
     Dates: start: 20240401
  26. FOLIC ACID [Concomitant]
     Active Substance: FOLIC ACID
     Indication: Anaemia
     Dosage: 5 MILLIGRAM, QD
     Route: 048
     Dates: start: 20140708
  27. GABAPENTIN [Concomitant]
     Active Substance: GABAPENTIN
     Indication: Pain
     Dosage: 100 MILLIGRAM, QD
     Route: 048
     Dates: start: 20220408
  28. LANSOPRAZOLE [Concomitant]
     Active Substance: LANSOPRAZOLE
     Indication: Gastrointestinal disorder prophylaxis
     Dosage: 30 MILLIGRAM, QD
     Route: 048
     Dates: start: 20240208
  29. LEVOFLOXACIN [Concomitant]
     Active Substance: LEVOFLOXACIN
     Indication: Pneumonia
     Dosage: 500 MILLIGRAM, QD
     Route: 042
     Dates: start: 20240602
  30. AMLODIPINE [Concomitant]
     Active Substance: AMLODIPINE BESYLATE
     Indication: Hypertension
     Dosage: 5 MILLIGRAM, QD
     Route: 048
     Dates: start: 202405
  31. RAMIPRIL [Concomitant]
     Active Substance: RAMIPRIL
     Indication: Hypertension
     Dosage: 10 MILLIGRAM, QD
     Route: 048
     Dates: start: 20240326
  32. MIRTAZAPINE [Concomitant]
     Active Substance: MIRTAZAPINE
     Indication: Post-traumatic stress disorder
     Dosage: 45 MILLIGRAM, QD
     Route: 048
     Dates: start: 20211129

REACTIONS (1)
  - Lower respiratory tract infection [Recovering/Resolving]

NARRATIVE: CASE EVENT DATE: 20240602
